FAERS Safety Report 4795266-2 (Version None)
Quarter: 2005Q4

REPORT INFORMATION
  Report Type: 
  Country: None (occurrence: None)
  Receive Date: 20051012
  Receipt Date: 20050216
  Transmission Date: 20060501
  Serious: Yes (Hospitalization)
  Sender: FDA-Public Use
  Company Number: 200511283US

PATIENT
  Age: 80 Year
  Sex: Female

DRUGS (1)
  1. LOVENOX [Suspect]
     Dosage: DOSE: UNK

REACTIONS (4)
  - BLADDER DISORDER [None]
  - INTESTINAL FUNCTIONAL DISORDER [None]
  - POST PROCEDURAL COMPLICATION [None]
  - SPINAL HAEMATOMA [None]
